FAERS Safety Report 4274925-4 (Version None)
Quarter: 2004Q1

REPORT INFORMATION
  Report Type: 
  Country: None (occurrence: None)
  Receive Date: 20040120
  Receipt Date: 20030819
  Transmission Date: 20041129
  Serious: Yes (Other)
  Sender: FDA-Public Use
  Company Number: WAES 0308USA01910

PATIENT
  Age: 82 Year
  Sex: Male
  Weight: 62 kg

DRUGS (1)
  1. ZETIA [Suspect]
     Indication: BLOOD CHOLESTEROL INCREASED
     Route: 048
     Dates: start: 20030521, end: 20030706

REACTIONS (2)
  - FATIGUE [None]
  - WEIGHT DECREASED [None]
